FAERS Safety Report 6338523-0 (Version None)
Quarter: 2009Q3

REPORT INFORMATION
  Report Type: 
  Country: None (occurrence: None)
  Receive Date: 20090901
  Receipt Date: 20090819
  Transmission Date: 20100115
  Serious: Yes (Hospitalization)
  Sender: FDA-Public Use
  Company Number: 8048801

PATIENT
  Sex: Female

DRUGS (2)
  1. KEPPRA [Suspect]
  2. KEPPRA [Suspect]

REACTIONS (2)
  - CONDITION AGGRAVATED [None]
  - MENTAL DISORDER [None]
